FAERS Safety Report 6566380-6 (Version None)
Quarter: 2010Q1

REPORT INFORMATION
  Report Type: 
  Country: None (occurrence: None)
  Receive Date: 20100202
  Receipt Date: 20100128
  Transmission Date: 20100710
  Serious: Yes (Other)
  Sender: FDA-Public Use
  Company Number: DE-WYE-G05300210

PATIENT

DRUGS (1)
  1. TREVILOR [Suspect]
     Dosage: UNKNOWN
     Route: 048

REACTIONS (1)
  - PROLACTINOMA [None]
